FAERS Safety Report 16610272 (Version 1)
Quarter: 2019Q3

REPORT INFORMATION
  Report Type: Spontaneous
  Country: PL (occurrence: PL)
  Receive Date: 20190722
  Receipt Date: 20190722
  Transmission Date: 20191004
  Serious: Yes (Other)
  Sender: FDA-Public Use
  Company Number: PL-TEVA-2019-PL-1079280

PATIENT
  Sex: Male

DRUGS (1)
  1. AMLODIPIN [Suspect]
     Active Substance: AMLODIPINE BESYLATE
     Indication: HYPERTENSION
     Route: 065

REACTIONS (3)
  - Cough [Unknown]
  - Dyspnoea [Unknown]
  - Pain in extremity [Unknown]
